FAERS Safety Report 9482137 (Version 2)
Quarter: 2013Q3

REPORT INFORMATION
  Report Type: Report from Study
  Country: AU (occurrence: AU)
  Receive Date: 20130828
  Receipt Date: 20130828
  Transmission Date: 20140515
  Serious: Yes (Other)
  Sender: FDA-Public Use
  Company Number: PHHY2013AU081609

PATIENT
  Age: 37 Year
  Sex: Male

DRUGS (3)
  1. CLOZARIL [Suspect]
     Indication: SCHIZOPHRENIA
     Dosage: 175 MG, QD
     Dates: start: 20130716
  2. PALIPERIDONE [Concomitant]
     Indication: SCHIZOPHRENIA
     Dosage: UNK
  3. PALIPERIDONE [Concomitant]
     Dosage: 6 MG, QD
     Route: 048
     Dates: start: 201306, end: 20130812

REACTIONS (6)
  - White blood cell count increased [Recovering/Resolving]
  - Neutrophil count increased [Recovering/Resolving]
  - Eosinophil count increased [Not Recovered/Not Resolved]
  - Diarrhoea [Recovered/Resolved]
  - Night sweats [Recovered/Resolved]
  - Tachycardia [Unknown]
